FAERS Safety Report 5419879-X (Version None)
Quarter: 2007Q3

REPORT INFORMATION
  Report Type: 
  Country: None (occurrence: None)
  Receive Date: 20070718
  Receipt Date: 20060922
  Transmission Date: 20080115
  Serious: Yes (Other)
  Sender: FDA-Public Use
  Company Number: 2006102319

PATIENT
  Age: 47 Year
  Sex: Male
  Weight: 83.9154 kg

DRUGS (1)
  1. CELEBREX [Suspect]
     Indication: ARTHRITIS
     Dosage: 100-200 MG (ONCE A DAY)
     Dates: start: 19990408, end: 20021221

REACTIONS (3)
  - MYOCARDIAL INFARCTION [None]
  - NERVOUSNESS [None]
  - THROMBOSIS [None]
